FAERS Safety Report 10080097 (Version 2)
Quarter: 2014Q2

REPORT INFORMATION
  Report Type: Spontaneous
  Country: US (occurrence: US)
  Receive Date: 20140415
  Receipt Date: 20140506
  Transmission Date: 20141212
  Serious: No
  Sender: FDA-Public Use
  Company Number: US-JNJFOC-20140402891

PATIENT
  Age: 45 Year
  Sex: Female

DRUGS (5)
  1. DURAGESIC [Suspect]
     Indication: PAIN
     Route: 062
  2. DURAGESIC [Suspect]
     Indication: PAIN
     Route: 062
  3. LYRICA [Concomitant]
     Indication: FIBROMYALGIA
     Route: 048
     Dates: start: 201403
  4. CELEBREX [Concomitant]
     Indication: ARTHRALGIA
     Dosage: AS NEEDED
     Route: 048
  5. ALLEGRA D [Concomitant]
     Indication: MULTIPLE ALLERGIES
     Route: 065
     Dates: start: 2009

REACTIONS (6)
  - False negative investigation result [Unknown]
  - Product adhesion issue [Unknown]
  - Drug ineffective [Not Recovered/Not Resolved]
  - Wrong technique in drug usage process [Unknown]
  - Wrong technique in drug usage process [Unknown]
  - Drug screen negative [Unknown]
